FAERS Safety Report 10238044 (Version 1)
Quarter: 2014Q2

REPORT INFORMATION
  Report Type: Spontaneous
  Country: PL (occurrence: PL)
  Receive Date: 20140616
  Receipt Date: 20140616
  Transmission Date: 20141212
  Serious: Yes (Other)
  Sender: FDA-Public Use
  Company Number: PL-JNJFOC-20140603112

PATIENT
  Age: 32 Year
  Sex: Female

DRUGS (2)
  1. DOXORUBICIN [Suspect]
     Indication: BREAST CANCER FEMALE
     Dosage: FOUR COURSES
     Route: 042
  2. CYCLOPHOSPHAMIDE [Suspect]
     Indication: BREAST CANCER FEMALE
     Dosage: FOUR COURSES
     Route: 065

REACTIONS (2)
  - Premature labour [Not Recovered/Not Resolved]
  - Exposure during pregnancy [Recovered/Resolved]
